FAERS Safety Report 9837870 (Version 1)
Quarter: 2014Q1

REPORT INFORMATION
  Report Type: Spontaneous
  Country: US (occurrence: US)
  Receive Date: 20140123
  Receipt Date: 20140123
  Transmission Date: 20141002
  Serious: Yes (Other)
  Sender: FDA-Public Use
  Company Number: US-RB-062281-14

PATIENT
  Age: 85 Year
  Sex: Female

DRUGS (1)
  1. MUCINEX FAST MAX SEVERE CONGESTION AND COUGH LIQUID [Suspect]
     Indication: PRODUCT USED FOR UNKNOWN INDICATION
     Route: 048

REACTIONS (1)
  - Rectal haemorrhage [Recovered/Resolved]
